FAERS Safety Report 23030180 (Version 1)
Quarter: 2023Q4

REPORT INFORMATION
  Report Type: Spontaneous
  Country: DE (occurrence: DE)
  Receive Date: 20231005
  Receipt Date: 20231005
  Transmission Date: 20240110
  Serious: Yes (Other)
  Sender: FDA-Public Use
  Company Number: DE-SANDOZ-SDZ2023DE034266

PATIENT
  Age: 42 Year
  Sex: Female

DRUGS (2)
  1. DASATINIB [Suspect]
     Active Substance: DASATINIB
     Indication: Chronic myeloid leukaemia
     Dosage: UNK
  2. IMATINIB [Suspect]
     Active Substance: IMATINIB
     Indication: Chronic myeloid leukaemia
     Dosage: UNK ABOUT 5 OR 6 YEARS AGO

REACTIONS (4)
  - Splenomegaly [Unknown]
  - White blood cell count increased [Unknown]
  - Drug intolerance [Unknown]
  - Philadelphia chromosome positive [Unknown]
